FAERS Safety Report 9023958 (Version 1)
Quarter: 2013Q1

REPORT INFORMATION
  Report Type: Spontaneous
  Country: JP (occurrence: JP)
  Receive Date: 20130121
  Receipt Date: 20130121
  Transmission Date: 20140127
  Serious: Yes (Other)
  Sender: FDA-Public Use
  Company Number: JP-BRISTOL-MYERS SQUIBB COMPANY-17293549

PATIENT
  Sex: Female

DRUGS (1)
  1. METGLUCO [Suspect]
     Indication: TYPE 2 DIABETES MELLITUS
     Dosage: UNK DATE: INCREASED TO 1500 MG
     Route: 048

REACTIONS (1)
  - Gastric ulcer [Unknown]
